FAERS Safety Report 7633292 (Version 2)
Quarter: 2012Q4

REPORT INFORMATION
  Report Type: Report from Study
  Country: JP (occurrence: JP)
  Receive Date: 20101019
  Receipt Date: 20121114
  Transmission Date: 20130627
  Serious: Yes (Death, Hospitalization)
  Sender: FDA-Public Use
  Company Number: JP-JNJFOC-20100901073

PATIENT
  Age: 56 None
  Sex: Male
  Weight: 76.7 kg

DRUGS (57)
  1. REMICADE [Suspect]
     Indication: BEHCET^S SYNDROME
     Route: 042
     Dates: start: 20080805
  2. REMICADE [Suspect]
     Indication: BEHCET^S SYNDROME
     Route: 042
     Dates: start: 20080514
  3. REMICADE [Suspect]
     Indication: BEHCET^S SYNDROME
     Route: 042
     Dates: start: 20080129
  4. REMICADE [Suspect]
     Indication: BEHCET^S SYNDROME
     Route: 042
     Dates: start: 20080916
  5. REMICADE [Suspect]
     Indication: BEHCET^S SYNDROME
     Route: 042
     Dates: start: 20081027
  6. REMICADE [Suspect]
     Indication: BEHCET^S SYNDROME
     Route: 042
     Dates: start: 20081212
  7. REMICADE [Suspect]
     Indication: BEHCET^S SYNDROME
     Route: 042
     Dates: start: 20090227
  8. STEROIDS NOS [Suspect]
     Indication: BEHCET^S SYNDROME
     Dates: start: 19980107
  9. STEROIDS NOS [Suspect]
     Indication: BEHCET^S SYNDROME
     Dates: start: 19980505
  10. PREDONINE [Concomitant]
     Indication: BEHCET^S SYNDROME
     Route: 048
     Dates: start: 20070804, end: 20090128
  11. PREDONINE [Concomitant]
     Indication: BEHCET^S SYNDROME
     Route: 048
     Dates: start: 20090128, end: 20090223
  12. PREDONINE [Concomitant]
     Indication: BEHCET^S SYNDROME
     Route: 048
     Dates: start: 20090303, end: 20090313
  13. PREDONINE [Concomitant]
     Indication: BEHCET^S SYNDROME
     Route: 048
     Dates: start: 20090314, end: 20090316
  14. MARZULENE [Concomitant]
     Route: 048
  15. NEORAL [Concomitant]
     Indication: BEHCET^S SYNDROME
     Route: 048
     Dates: start: 20050819, end: 20050830
  16. NEORAL [Concomitant]
     Indication: BEHCET^S SYNDROME
     Route: 048
     Dates: start: 20050831, end: 20050916
  17. RHEUMATREX [Concomitant]
     Indication: BEHCET^S SYNDROME
     Route: 048
     Dates: start: 20070804, end: 20090129
  18. NORVASC [Concomitant]
     Indication: HYPERTENSION
     Route: 048
     Dates: start: 20070804, end: 20090129
  19. PRIDOL [Concomitant]
     Indication: BEHCET^S SYNDROME
     Route: 050
     Dates: start: 20090505, end: 20090507
  20. PRIDOL [Concomitant]
     Indication: BEHCET^S SYNDROME
     Route: 050
     Dates: start: 20090331, end: 20090402
  21. METHOTREXATE [Concomitant]
     Indication: BEHCET^S SYNDROME
     Route: 048
     Dates: start: 20090129, end: 20090312
  22. PREDONINE [Concomitant]
     Indication: BEHCET^S SYNDROME
     Route: 050
     Dates: start: 20090305, end: 20090318
  23. PREDONINE [Concomitant]
     Indication: BEHCET^S SYNDROME
     Route: 050
     Dates: start: 20090224, end: 20090302
  24. PREDONINE [Concomitant]
     Indication: BEHCET^S SYNDROME
     Route: 050
     Dates: start: 20090407, end: 20090506
  25. PREDONINE [Concomitant]
     Indication: BEHCET^S SYNDROME
     Route: 050
     Dates: start: 20090403, end: 20090406
  26. PREDONINE [Concomitant]
     Indication: BEHCET^S SYNDROME
     Route: 050
     Dates: start: 20090508, end: 20090515
  27. PREDONINE [Concomitant]
     Indication: BEHCET^S SYNDROME
     Route: 050
     Dates: start: 20070804, end: 20090128
  28. PREDNISOLONE [Concomitant]
     Dates: start: 20090505
  29. PREDNISOLONE [Concomitant]
     Dates: start: 20090305
  30. PREDNISOLONE [Concomitant]
     Dates: start: 19980220
  31. PREDNISOLONE [Concomitant]
     Dates: start: 19980114
  32. PREDNISOLONE [Concomitant]
     Dates: start: 19980117
  33. PREDNISOLONE [Concomitant]
     Dates: start: 19980213, end: 19980219
  34. PREDNISOLONE [Concomitant]
  35. PREDNISOLONE [Concomitant]
     Dates: start: 20090501, end: 20090504
  36. PREDNISOLONE [Concomitant]
     Dates: start: 19980206, end: 19980212
  37. MYDRIN P [Concomitant]
     Route: 031
     Dates: start: 19980220
  38. BIOFERMIN [Concomitant]
     Route: 048
  39. TAGAMET [Concomitant]
     Route: 048
  40. FLUMETHOLON [Concomitant]
     Route: 048
  41. VITAMEDIN [Concomitant]
     Route: 048
  42. FOLIAMIN [Concomitant]
     Route: 048
  43. ACTONEL [Concomitant]
     Route: 048
  44. CELECOX [Concomitant]
     Route: 048
  45. HYALEIN [Concomitant]
     Route: 031
  46. MEXILETINE HYDROCHLORIDE [Concomitant]
     Route: 048
  47. COLCHICINE [Concomitant]
     Indication: BEHCET^S SYNDROME
     Route: 048
     Dates: start: 20090129, end: 20090323
  48. COLCHICINE [Concomitant]
     Indication: BEHCET^S SYNDROME
     Route: 048
     Dates: start: 20050510, end: 20090323
  49. COLCHICINE [Concomitant]
     Indication: BEHCET^S SYNDROME
     Route: 048
     Dates: start: 20070804, end: 20090128
  50. PREMINENT [Concomitant]
     Indication: HYPERTENSION
     Route: 048
     Dates: start: 20090129, end: 20090317
  51. BAYASPIRIN [Concomitant]
     Indication: BEHCET^S SYNDROME
     Route: 048
     Dates: start: 20090129, end: 20090317
  52. TAKEPRON [Concomitant]
     Indication: GASTRIC ULCER
     Route: 048
  53. TAKEPRON [Concomitant]
     Indication: GASTRIC ULCER
     Route: 048
     Dates: start: 20070804, end: 20090317
  54. ALOSITOL [Concomitant]
     Indication: HYPERURICAEMIA
     Route: 048
     Dates: start: 20070804, end: 20090317
  55. DORNER [Concomitant]
     Indication: BEHCET^S SYNDROME
     Route: 048
     Dates: start: 20070804, end: 20090317
  56. SALAZOPYRIN [Concomitant]
     Indication: BEHCET^S SYNDROME
     Route: 048
     Dates: start: 20070804, end: 20090317
  57. VOLTAREN [Concomitant]
     Indication: BEHCET^S SYNDROME
     Route: 048
     Dates: start: 20070804, end: 20090317

REACTIONS (13)
  - Intestinal perforation [Fatal]
  - Peritonitis [Unknown]
  - Aortic aneurysm rupture [Unknown]
  - Disseminated intravascular coagulation [Unknown]
  - Spinal compression fracture [Unknown]
  - Intervertebral disc protrusion [Unknown]
  - Wound dehiscence [Unknown]
  - Increased bronchial secretion [Unknown]
  - Tracheostomy [Unknown]
  - Septic shock [Unknown]
  - Behcet^s syndrome [Unknown]
  - Staphylococcal infection [Unknown]
  - Bacterial test [Unknown]
